FAERS Safety Report 5248317-5 (Version None)
Quarter: 2007Q1

REPORT INFORMATION
  Report Type: 
  Country: None (occurrence: None)
  Receive Date: 20070227
  Receipt Date: 20070214
  Transmission Date: 20070707
  Serious: Yes (Other)
  Sender: FDA-Public Use
  Company Number: US-SHR-US-2006-039429

PATIENT
  Age: 49 Year
  Sex: Female

DRUGS (2)
  1. BETASERON [Suspect]
     Dosage: 8 MIU, EVERY 2D
     Route: 058
     Dates: start: 20051112
  2. NEURONTIN [Concomitant]
     Dosage: UNK, UNK

REACTIONS (3)
  - INJECTION SITE PAIN [None]
  - INJECTION SITE RASH [None]
  - RETINAL EXUDATES [None]
